FAERS Safety Report 18550681 (Version 1)
Quarter: 2020Q4

REPORT INFORMATION
  Report Type: Spontaneous
  Country: US (occurrence: US)
  Receive Date: 20201126
  Receipt Date: 20201126
  Transmission Date: 20210114
  Serious: No
  Sender: FDA-Public Use
  Company Number: US-TAKEDA-2020TUS052458

PATIENT
  Sex: Female
  Weight: 58.96 kg

DRUGS (32)
  1. GAMMAGARD S/D [Suspect]
     Active Substance: HUMAN IMMUNOGLOBULIN G
     Indication: SINUSITIS
     Dosage: 90 GRAM, Q4WEEKS
     Route: 042
     Dates: start: 20160511
  2. ONDANSETRON [Concomitant]
     Active Substance: ONDANSETRON
  3. RIZATRIPTAN. [Concomitant]
     Active Substance: RIZATRIPTAN
  4. CLARITIN [CLARITHROMYCIN] [Concomitant]
     Active Substance: CLARITHROMYCIN
  5. NORMAL SALINE [Concomitant]
     Active Substance: SODIUM CHLORIDE
  6. DOXYCYCLINE. [Concomitant]
     Active Substance: DOXYCYCLINE
  7. PANTOPRAZOLE [Concomitant]
     Active Substance: PANTOPRAZOLE
  8. TOPIRAMATE. [Concomitant]
     Active Substance: TOPIRAMATE
  9. BORIC ACID [Concomitant]
     Active Substance: BORIC ACID
  10. CYCLOBENZAPRINE. [Concomitant]
     Active Substance: CYCLOBENZAPRINE
  11. FAMOTIDINE. [Concomitant]
     Active Substance: FAMOTIDINE
  12. ALEVE [Concomitant]
     Active Substance: NAPROXEN SODIUM
  13. BIOTIN [Concomitant]
     Active Substance: BIOTIN
  14. GAMMAGARD S/D [Suspect]
     Active Substance: HUMAN IMMUNOGLOBULIN G
     Indication: IMMUNODEFICIENCY COMMON VARIABLE
  15. BETAMETHASONE. [Concomitant]
     Active Substance: BETAMETHASONE
  16. EXCEDRIN [Concomitant]
     Active Substance: ACETAMINOPHEN\ASPIRIN\CAFFEINE
  17. FLUBLOK [Concomitant]
     Active Substance: INFLUENZA A VIRUS A/CALIFORNIA/7/2009 (H1N1) RECOMBINANT HEMAGGLUTININ ANTIGEN\INFLUENZA A VIRUS A/VICTORIA/361/2011 (H3N2) RECOMBINANT HEMAGGLUTININ ANTIGEN\INFLUENZA B VIRUS B/WISCONSIN/1/2010 RECOMBINANT HEMAGGLUTININ ANTIGEN
  18. GAMMAGARD S/D [Suspect]
     Active Substance: HUMAN IMMUNOGLOBULIN G
     Indication: SINUSITIS
     Dosage: 90 GRAM, Q4WEEKS
     Route: 042
     Dates: start: 20160511
  19. HYOSCYAMINE. [Concomitant]
     Active Substance: HYOSCYAMINE
  20. MOTRIN [Concomitant]
     Active Substance: IBUPROFEN
  21. DIPHENHYDRAMINE. [Concomitant]
     Active Substance: DIPHENHYDRAMINE
  22. ADDERALL [Concomitant]
     Active Substance: AMPHETAMINE ASPARTATE\AMPHETAMINE SULFATE\DEXTROAMPHETAMINE SACCHARATE\DEXTROAMPHETAMINE SULFATE
  23. SUMATRIPTAN. [Concomitant]
     Active Substance: SUMATRIPTAN
  24. LEXAPRO [Concomitant]
     Active Substance: ESCITALOPRAM OXALATE
  25. SODIUM CHLORIDE. [Concomitant]
     Active Substance: SODIUM CHLORIDE
  26. MAXALT [Concomitant]
     Active Substance: RIZATRIPTAN BENZOATE
  27. FLUTICASONE. [Concomitant]
     Active Substance: FLUTICASONE
  28. SPIRONOLACTONE. [Concomitant]
     Active Substance: SPIRONOLACTONE
  29. GAMMAGARD S/D [Suspect]
     Active Substance: HUMAN IMMUNOGLOBULIN G
     Indication: IMMUNODEFICIENCY COMMON VARIABLE
  30. TRAMADOL. [Concomitant]
     Active Substance: TRAMADOL
  31. EPINEPHRINE. [Concomitant]
     Active Substance: EPINEPHRINE
  32. VITAMIN D3 [Concomitant]
     Active Substance: CHOLECALCIFEROL

REACTIONS (2)
  - Sinusitis [Unknown]
  - Ear infection [Unknown]
